FAERS Safety Report 9486402 (Version 2)
Quarter: 2013Q4

REPORT INFORMATION
  Report Type: Spontaneous
  Country: US (occurrence: US)
  Receive Date: 20130829
  Receipt Date: 20131007
  Transmission Date: 20140711
  Serious: Yes (Death)
  Sender: FDA-Public Use
  Company Number: US-PFIZER INC-2013248757

PATIENT
  Age: 40 Year
  Sex: Female
  Weight: 72.56 kg

DRUGS (3)
  1. PRISTIQ [Suspect]
     Indication: DEPRESSION
     Dosage: 50 MG, 1X/DAY
     Route: 048
  2. TOPAMAX [Concomitant]
     Dosage: UNK
  3. NORCO [Concomitant]
     Dosage: UNK

REACTIONS (3)
  - Death [Fatal]
  - Emotional disorder [Recovering/Resolving]
  - Anger [Recovering/Resolving]
